FAERS Safety Report 9666681 (Version 2)
Quarter: 2014Q2

REPORT INFORMATION
  Report Type: Spontaneous
  Country: US (occurrence: US)
  Receive Date: 20131104
  Receipt Date: 20140421
  Transmission Date: 20141212
  Serious: No
  Sender: FDA-Public Use
  Company Number: US-BIOGENIDEC-2013BI087169

PATIENT
  Age: 60 Year
  Sex: Female

DRUGS (32)
  1. TECFIDERA [Suspect]
     Indication: MULTIPLE SCLEROSIS
     Dates: start: 20130801, end: 20130831
  2. TECFIDERA [Suspect]
     Indication: MULTIPLE SCLEROSIS
     Route: 048
     Dates: start: 20130828
  3. TECFIDERA [Suspect]
     Indication: MULTIPLE SCLEROSIS
     Route: 048
     Dates: end: 20130916
  4. AVONEX [Concomitant]
     Indication: MULTIPLE SCLEROSIS
     Route: 030
  5. AVONEX [Concomitant]
     Indication: MULTIPLE SCLEROSIS
     Route: 030
     Dates: start: 20010201
  6. AVONEX [Concomitant]
     Indication: MULTIPLE SCLEROSIS
     Route: 030
     Dates: start: 20130909
  7. LISINOPRIL+ HCTZ [Concomitant]
  8. LEVOTHYROXINE [Concomitant]
  9. PRAVASTATIN [Concomitant]
  10. PRAVASTATIN [Concomitant]
  11. SUMATRIPTAN [Concomitant]
  12. DIETHYLPROPION ER [Concomitant]
  13. VIVELLE DOT [Concomitant]
  14. ALPRAZOLAM [Concomitant]
  15. AMITRIPTYLINE [Concomitant]
  16. DONEPEZIL [Concomitant]
  17. LISINOPRIL [Concomitant]
  18. MAGNESIUM OXIDE [Concomitant]
  19. XANAX [Concomitant]
  20. NASONEX [Concomitant]
  21. ANTIVERT [Concomitant]
  22. AFRIN [Concomitant]
  23. BAYER CHILD ASPIRIN [Concomitant]
  24. LEVOXYL [Concomitant]
  25. PROTONIX [Concomitant]
  26. REBIF [Concomitant]
  27. PROGESTERONE [Concomitant]
  28. AMANTADINE [Concomitant]
  29. PANTOPRAZOLE [Concomitant]
  30. FINACEA [Concomitant]
  31. IBUPROFEN [Concomitant]
  32. IBUPROFEN [Concomitant]

REACTIONS (8)
  - Dizziness [Recovered/Resolved]
  - Weight decreased [Recovered/Resolved]
  - Anxiety [Not Recovered/Not Resolved]
  - Chest discomfort [Not Recovered/Not Resolved]
  - Nausea [Recovered/Resolved]
  - Vomiting [Unknown]
  - Abdominal pain [Unknown]
  - Abdominal pain upper [Recovered/Resolved]
